FAERS Safety Report 15545919 (Version 2)
Quarter: 2018Q4

REPORT INFORMATION
  Report Type: Spontaneous
  Country: US (occurrence: US)
  Receive Date: 20181024
  Receipt Date: 20181218
  Transmission Date: 20190205
  Serious: No
  Sender: FDA-Public Use
  Company Number: US-ASTRAZENECA-2018SF35926

PATIENT
  Age: 81 Year
  Sex: Male

DRUGS (10)
  1. ALLOPURINOL. [Concomitant]
     Active Substance: ALLOPURINOL
  2. METFORMIN [Concomitant]
     Active Substance: METFORMIN HYDROCHLORIDE
  3. METFORMIN [Concomitant]
     Active Substance: METFORMIN HYDROCHLORIDE
     Dates: end: 20180720
  4. GEMFIBROZIL. [Concomitant]
     Active Substance: GEMFIBROZIL
  5. FINASTERIDE. [Concomitant]
     Active Substance: FINASTERIDE
  6. METFORMIN [Concomitant]
     Active Substance: METFORMIN HYDROCHLORIDE
  7. METOPROLOL. [Suspect]
     Active Substance: METOPROLOL
     Route: 048
  8. TRADITIONAL CHINESE MEDICINE NOS [Concomitant]
  9. BYDUREON BCISE [Suspect]
     Active Substance: EXENATIDE
     Indication: DIABETES MELLITUS
     Route: 065
     Dates: start: 20180427, end: 20180627
  10. ASPIRIN. [Concomitant]
     Active Substance: ASPIRIN

REACTIONS (9)
  - Nausea [Unknown]
  - Feeling jittery [Unknown]
  - Dizziness [Unknown]
  - Somnolence [Unknown]
  - Heart rate abnormal [Unknown]
  - Injection site mass [Unknown]
  - Hyperhidrosis [Unknown]
  - Drug ineffective [Unknown]
  - Intentional product misuse [Unknown]
